FAERS Safety Report 25773383 (Version 1)
Quarter: 2025Q3

REPORT INFORMATION
  Report Type: Spontaneous
  Country: US (occurrence: None)
  Receive Date: 20250905
  Receipt Date: 20250905
  Transmission Date: 20251021
  Serious: Yes (unspecified)
  Sender: FDA-CTU
  Company Number: None

PATIENT
  Age: 21 Year
  Sex: Female
  Weight: 50 kg

DRUGS (1)
  1. INFLIXIMAB [Suspect]
     Active Substance: INFLIXIMAB
     Indication: Crohn^s disease
     Route: 042
     Dates: start: 20250402, end: 20250806

REACTIONS (6)
  - Infusion related reaction [None]
  - Immunosuppressant drug level decreased [None]
  - Chest discomfort [None]
  - Dyspnoea [None]
  - Paranasal sinus discomfort [None]
  - Drug specific antibody [None]

NARRATIVE: CASE EVENT DATE: 20250710
